FAERS Safety Report 14481892 (Version 3)
Quarter: 2018Q2

REPORT INFORMATION
  Report Type: Spontaneous
  Country: US (occurrence: US)
  Receive Date: 20180202
  Receipt Date: 20180502
  Transmission Date: 20180711
  Serious: Yes (Other)
  Sender: FDA-Public Use
  Company Number: US-BAYER-2018-022125

PATIENT
  Age: 24 Year
  Sex: Female
  Weight: 92.97 kg

DRUGS (1)
  1. MIRENA [Suspect]
     Active Substance: LEVONORGESTREL
     Indication: CONTRACEPTION
     Dosage: 20 MCG/24HR, CONT
     Route: 015
     Dates: start: 20150819, end: 20170426

REACTIONS (10)
  - Anhedonia [None]
  - Idiopathic intracranial hypertension [None]
  - Headache [None]
  - Vision blurred [None]
  - Depression [None]
  - Anxiety [None]
  - Dizziness [None]
  - Emotional distress [None]
  - Tinnitus [None]
  - Pain [None]

NARRATIVE: CASE EVENT DATE: 201702
